FAERS Safety Report 7592037-9 (Version None)
Quarter: 2011Q3

REPORT INFORMATION
  Report Type: 
  Country: None (occurrence: None)
  Receive Date: 20110706
  Receipt Date: 20110627
  Transmission Date: 20111222
  Serious: Yes (Hospitalization)
  Sender: FDA-Public Use
  Company Number: JP-ASTRAZENECA-2011SE38859

PATIENT
  Age: 70 Year
  Sex: Male

DRUGS (6)
  1. ZEFLOPTO [Concomitant]
     Dosage: DOSE UNKNOWN
     Route: 048
  2. MELOXICAM [Concomitant]
     Dosage: DOSE UNKNOWN
     Route: 048
  3. VALSARTAN  AND HYDROCHLOROTHIAZIDE [Concomitant]
     Dosage: DOSE UNKNOWN
     Route: 048
  4. SYMBICORT [Suspect]
     Indication: ASTHMA
     Dosage: 1 DF INHALATION TWO TIMES A DAY
     Route: 055
     Dates: start: 20101118, end: 20110405
  5. ANTOBRON L [Concomitant]
     Dosage: DOSE UNKNOWN
     Route: 048
  6. NE-SOFT [Concomitant]
     Dosage: DOSE UNKNOWN
     Route: 048

REACTIONS (1)
  - PULMONARY TUBERCULOSIS [None]
